FAERS Safety Report 19264250 (Version 1)
Quarter: 2021Q2

REPORT INFORMATION
  Report Type: Spontaneous
  Country: CN (occurrence: CN)
  Receive Date: 20210517
  Receipt Date: 20210517
  Transmission Date: 20210717
  Serious: Yes (Hospitalization)
  Sender: FDA-Public Use
  Company Number: CN-STRIDES ARCOLAB LIMITED-2021SP005399

PATIENT
  Age: 80 Year
  Sex: Female

DRUGS (3)
  1. CALCIUM CARBONATE. [Suspect]
     Active Substance: CALCIUM CARBONATE
     Indication: OSTEOPOROSIS
     Dosage: 1000 MILLIGRAM, TID
     Route: 065
  2. SODIUM BICARBONATE. [Suspect]
     Active Substance: SODIUM BICARBONATE
     Indication: CHRONIC KIDNEY DISEASE
     Dosage: 1000 MILLIGRAM, TID
     Route: 065
  3. CALCITRIOL. [Suspect]
     Active Substance: CALCITRIOL
     Indication: OSTEOPOROSIS
     Dosage: 0.25 MICROGRAM, BID
     Route: 065

REACTIONS (3)
  - Milk-alkali syndrome [Recovered/Resolved]
  - Off label use [Unknown]
  - Delirium [Recovered/Resolved]
